FAERS Safety Report 24166630 (Version 1)
Quarter: 2024Q3

REPORT INFORMATION
  Report Type: Spontaneous
  Country: RU (occurrence: RU)
  Receive Date: 20240802
  Receipt Date: 20240802
  Transmission Date: 20241017
  Serious: Yes (Other)
  Sender: RANBAXY
  Company Number: RU-SUN PHARMACEUTICAL INDUSTRIES LTD-2024R1-458828

PATIENT
  Age: 36 Year
  Sex: Male

DRUGS (4)
  1. CLOPIDOGREL [Suspect]
     Active Substance: CLOPIDOGREL BISULFATE
     Indication: Ischaemia
     Dosage: UNK
     Route: 065
  2. PREDNISONE [Suspect]
     Active Substance: PREDNISONE
     Indication: Ischaemia
     Dosage: UNK (1.8 MG/KG)
     Route: 065
     Dates: start: 20200225
  3. INFLIXIMAB [Suspect]
     Active Substance: INFLIXIMAB
     Indication: Ischaemia
     Dosage: UNK (360 MG)
     Route: 065
     Dates: start: 20200225
  4. TRENTAL [Suspect]
     Active Substance: PENTOXIFYLLINE
     Indication: Ischaemia
     Dosage: UNK
     Route: 065

REACTIONS (1)
  - Dry gangrene [Recovered/Resolved]
